FAERS Safety Report 11009593 (Version 1)
Quarter: 2015Q2

REPORT INFORMATION
  Report Type: Spontaneous
  Country: US (occurrence: US)
  Receive Date: 20150410
  Receipt Date: 20150410
  Transmission Date: 20150821
  Serious: No
  Sender: FDA-Public Use
  Company Number: US-ENDO PHARMACEUTICALS INC.-DIAZ20140012

PATIENT
  Sex: Female

DRUGS (3)
  1. DIAZEPAM 10MG [Suspect]
     Active Substance: DIAZEPAM
     Indication: INSOMNIA
     Route: 048
  2. CLONAZEPAM. [Suspect]
     Active Substance: CLONAZEPAM
     Indication: PRODUCT USED FOR UNKNOWN INDICATION
     Dosage: UNKNOWN
     Route: 048
  3. DIAZEPAM 10MG [Suspect]
     Active Substance: DIAZEPAM
     Route: 048
     Dates: start: 20141005

REACTIONS (12)
  - Decreased appetite [Unknown]
  - Gastritis [Unknown]
  - Headache [Not Recovered/Not Resolved]
  - Insomnia [Unknown]
  - Hyperhidrosis [Unknown]
  - Incoherent [Not Recovered/Not Resolved]
  - Tremor [Unknown]
  - Drug administration error [Unknown]
  - Vomiting [Unknown]
  - Drug dispensing error [Unknown]
  - Weight decreased [Unknown]
  - Drug ineffective for unapproved indication [Unknown]
